FAERS Safety Report 19880692 (Version 4)
Quarter: 2022Q1

REPORT INFORMATION
  Report Type: Report from Study
  Country: ES (occurrence: None)
  Receive Date: 20210924
  Receipt Date: 20220223
  Transmission Date: 20220423
  Serious: Yes (Hospitalization)
  Sender: FDA-Public Use
  Company Number: ES-ROCHE-2911002

PATIENT
  Age: 48 Year
  Sex: Female

DRUGS (4)
  1. ATEZOLIZUMAB [Suspect]
     Active Substance: ATEZOLIZUMAB
     Indication: Breast cancer
     Dosage: LAST DOSE 1200 PER MG BEFORE SAE 25/06/2021?COURSES: 3
     Route: 041
     Dates: start: 20210513
  2. ATEZOLIZUMAB [Suspect]
     Active Substance: ATEZOLIZUMAB
     Route: 042
     Dates: start: 20210504
  3. EPIRUBICIN [Suspect]
     Active Substance: EPIRUBICIN
     Indication: Breast cancer
     Dosage: 3 COURSES?ON 25/JUN/2021, RECEIVED MOST RECENT DOSE 154.8 MG PRIOR TO  SAE.
     Route: 042
     Dates: start: 20210513
  4. CYCLOPHOSPHAMIDE [Suspect]
     Active Substance: CYCLOPHOSPHAMIDE
     Indication: Breast cancer
     Dosage: 3 COURSES?ON 25/JUN/2021, RECEIVED MOST RECENT DOSE 1032 PER MG PRIOR TO  SAE.
     Route: 042
     Dates: start: 20210513

REACTIONS (1)
  - Vomiting [Recovered/Resolved]

NARRATIVE: CASE EVENT DATE: 20210626
